FAERS Safety Report 4993970-4 (Version None)
Quarter: 2006Q2

REPORT INFORMATION
  Report Type: 
  Country: None (occurrence: None)
  Receive Date: 20060505
  Receipt Date: 20060421
  Transmission Date: 20061013
  Serious: No
  Sender: FDA-Public Use
  Company Number: ES-GLAXOSMITHKLINE-B0421850A

PATIENT
  Age: 50 Year
  Sex: Female

DRUGS (2)
  1. LAMICTAL [Suspect]
     Indication: DEPRESSED MOOD
     Dosage: 25MG UNKNOWN
     Route: 048
     Dates: start: 20060420, end: 20060421
  2. VENLAFAXINE HCL [Suspect]
     Indication: DEPRESSED MOOD
     Dosage: 300MG UNKNOWN
     Route: 048
     Dates: start: 20060420, end: 20060421

REACTIONS (5)
  - PAIN [None]
  - PRURITUS [None]
  - RASH [None]
  - RASH ERYTHEMATOUS [None]
  - URINARY RETENTION [None]
